FAERS Safety Report 9263929 (Version 1)
Quarter: 2013Q2

REPORT INFORMATION
  Report Type: Other
  Country: DK (occurrence: DK)
  Receive Date: 20130430
  Receipt Date: 20130430
  Transmission Date: 20140414
  Serious: Yes (Hospitalization)
  Sender: FDA-Public Use
  Company Number: DK-NICOBRDEVP-2013-07380

PATIENT
  Age: 58 Year
  Sex: Male

DRUGS (2)
  1. LAMOTRIGINE (UNKNOWN) [Suspect]
     Indication: EPILEPSY
     Dosage: 100 MG, BID
     Route: 065
     Dates: start: 20121109
  2. SUMATRIPTAN TEVA [Concomitant]
     Indication: PRODUCT USED FOR UNKNOWN INDICATION
     Dosage: UNK UNK, UNKNOWN
     Route: 065

REACTIONS (3)
  - Epilepsy [Unknown]
  - Inappropriate affect [Unknown]
  - Drug ineffective [Not Recovered/Not Resolved]
